FAERS Safety Report 19153487 (Version 1)
Quarter: 2021Q2

REPORT INFORMATION
  Report Type: Spontaneous
  Country: US (occurrence: US)
  Receive Date: 20210419
  Receipt Date: 20210419
  Transmission Date: 20210717
  Serious: No
  Sender: FDA-Public Use
  Company Number: US-GLAXOSMITHKLINE-US2021083454

PATIENT
  Age: 34 Year
  Sex: Female

DRUGS (1)
  1. BENLYSTA [Suspect]
     Active Substance: BELIMUMAB
     Indication: PRODUCT USED FOR UNKNOWN INDICATION
     Dosage: UNK
     Route: 042
     Dates: start: 20210317

REACTIONS (14)
  - Dizziness [Unknown]
  - Memory impairment [Unknown]
  - Pruritus [Unknown]
  - Malaise [Unknown]
  - Insomnia [Unknown]
  - Rash [Unknown]
  - Disturbance in attention [Unknown]
  - Petechiae [Unknown]
  - Blood potassium decreased [Unknown]
  - Gingival bleeding [Unknown]
  - Contusion [Unknown]
  - Hyperhidrosis [Unknown]
  - Feeling hot [Unknown]
  - Feeling abnormal [Unknown]

NARRATIVE: CASE EVENT DATE: 20210409
